FAERS Safety Report 18920982 (Version 3)
Quarter: 2021Q2

REPORT INFORMATION
  Report Type: Other
  Country: CA (occurrence: CA)
  Receive Date: 20210222
  Receipt Date: 20210612
  Transmission Date: 20210717
  Serious: Yes (Other)
  Sender: FDA-Public Use
  Company Number: CA-ROCHE-2648900

PATIENT
  Age: 61 Year
  Sex: Male

DRUGS (20)
  1. CALCIUM [Concomitant]
     Active Substance: CALCIUM
  2. SOLU?MEDROL [Concomitant]
     Active Substance: METHYLPREDNISOLONE SODIUM SUCCINATE
     Indication: PREMEDICATION
     Dates: start: 20200723
  3. ZOLOFT [Concomitant]
     Active Substance: SERTRALINE HYDROCHLORIDE
  4. HUMALOG [Concomitant]
     Active Substance: INSULIN LISPRO
  5. LIPITOR [Concomitant]
     Active Substance: ATORVASTATIN CALCIUM
  6. TRAJENTA [Concomitant]
     Active Substance: LINAGLIPTIN
  7. PREDNISONE. [Concomitant]
     Active Substance: PREDNISONE
  8. SENOKOT [Concomitant]
     Active Substance: SENNOSIDES
  9. TYLENOL [Concomitant]
     Active Substance: ACETAMINOPHEN
     Indication: PREMEDICATION
  10. LOVENOX [Concomitant]
     Active Substance: ENOXAPARIN SODIUM
  11. PANTOLOC [Concomitant]
     Active Substance: PANTOPRAZOLE SODIUM
  12. LAX?A?DAY [Concomitant]
     Active Substance: POLYETHYLENE GLYCOL 3350
  13. RITUXAN [Suspect]
     Active Substance: RITUXIMAB
     Indication: SUSAC^S SYNDROME
     Dosage: DATE OF LAST INFUSION OF RITUXIMAB: 06/AUG/2020
     Route: 042
     Dates: start: 20200723
  14. VITAMIN D3 [Concomitant]
     Active Substance: CHOLECALCIFEROL
  15. BENADRYL [Concomitant]
     Active Substance: DIPHENHYDRAMINE HYDROCHLORIDE
     Indication: PREMEDICATION
     Route: 048
     Dates: start: 20200723
  16. TYLENOL [Concomitant]
     Active Substance: ACETAMINOPHEN
     Indication: PAIN
     Route: 048
     Dates: start: 20200723
  17. METFORMIN [Concomitant]
     Active Substance: METFORMIN HYDROCHLORIDE
  18. ACETAMINOPHEN. [Concomitant]
     Active Substance: ACETAMINOPHEN
     Indication: PREMEDICATION
     Route: 048
     Dates: start: 20200723
  19. KEPPRA [Concomitant]
     Active Substance: LEVETIRACETAM
  20. METOPROLOL. [Concomitant]
     Active Substance: METOPROLOL

REACTIONS (5)
  - Heart rate increased [Unknown]
  - Oxygen saturation decreased [Unknown]
  - Tachycardia [Unknown]
  - Off label use [Unknown]
  - Blood pressure diastolic abnormal [Unknown]

NARRATIVE: CASE EVENT DATE: 20200723
